FAERS Safety Report 15955130 (Version 2)
Quarter: 2019Q2

REPORT INFORMATION
  Report Type: Spontaneous
  Country: US (occurrence: US)
  Receive Date: 20190213
  Receipt Date: 20190502
  Transmission Date: 20190711
  Serious: No
  Sender: FDA-Public Use
  Company Number: US-PFIZER INC-2019059462

PATIENT
  Age: 59 Year
  Sex: Female

DRUGS (1)
  1. PRISTIQ EXTENDED-RELEASE [Suspect]
     Active Substance: DESVENLAFAXINE SUCCINATE
     Dosage: UNK

REACTIONS (1)
  - Treatment failure [Unknown]
